FAERS Safety Report 24687064 (Version 4)
Quarter: 2025Q1

REPORT INFORMATION
  Report Type: Spontaneous
  Country: US (occurrence: US)
  Receive Date: 20241202
  Receipt Date: 20250226
  Transmission Date: 20250409
  Serious: No
  Sender: MERCK SHARP & DOHME LLC
  Company Number: US-PFIZER INC-PV202400154966

PATIENT
  Age: 68 Year
  Sex: Female

DRUGS (2)
  1. TUCATINIB [Suspect]
     Active Substance: TUCATINIB
  2. TUCATINIB [Suspect]
     Active Substance: TUCATINIB
     Dosage: 150 MG; 2 TABLETS TWICE DAILY

REACTIONS (1)
  - Folate deficiency [Unknown]
